FAERS Safety Report 9821892 (Version 1)
Quarter: 2014Q1

REPORT INFORMATION
  Report Type: Spontaneous
  Country: US (occurrence: None)
  Receive Date: 20140114
  Receipt Date: 20140114
  Transmission Date: 20141002
  Serious: Yes (Other)
  Sender: FDA-Public Use
  Company Number: 2014P1000024

PATIENT
  Age: 28 Year
  Sex: Male

DRUGS (3)
  1. DEXAMETHASONE [Suspect]
     Indication: NEUROCYSTICERCOSIS
  2. ALBENDAZOLE [Concomitant]
  3. LEVETIRACETAM [Concomitant]

REACTIONS (5)
  - Pyrexia [None]
  - Headache [None]
  - Asthenia [None]
  - Brain oedema [None]
  - Drug withdrawal syndrome [None]
